FAERS Safety Report 25994986 (Version 1)
Quarter: 2025Q4

REPORT INFORMATION
  Report Type: Spontaneous
  Country: IN (occurrence: None)
  Receive Date: 20251104
  Receipt Date: 20251104
  Transmission Date: 20260118
  Serious: Yes (Other)
  Sender: ENCUBE ETHICALS PVT. LTD.
  Company Number: IN-Encube-002547

PATIENT
  Age: 45 Year
  Sex: Male

DRUGS (6)
  1. DAPSONE [Suspect]
     Active Substance: DAPSONE
     Indication: Borderline leprosy
  2. RIFAMPIN [Concomitant]
     Active Substance: RIFAMPIN
     Indication: Borderline leprosy
     Dosage: DRUG WAS DISCONTINUED
  3. CLOFAZIMINE [Concomitant]
     Active Substance: CLOFAZIMINE
     Indication: Borderline leprosy
     Dosage: DRUG WAS DISCONTINUED
  4. RIFAMPIN [Concomitant]
     Active Substance: RIFAMPIN
     Indication: Borderline leprosy
     Dosage: DRUG WAS  REINTRODUCED WITH A MODIFIED REGIMEN
  5. CLOFAZIMINE [Concomitant]
     Active Substance: CLOFAZIMINE
     Indication: Borderline leprosy
     Dosage: DRUG WAS  REINTRODUCED WITH A MODIFIED REGIMEN, DAYS 2-28
  6. CLOFAZIMINE [Concomitant]
     Active Substance: CLOFAZIMINE
     Indication: Borderline leprosy
     Dosage: DRUG WAS  REINTRODUCED WITH A MODIFIED REGIMEN

REACTIONS (2)
  - Drug reaction with eosinophilia and systemic symptoms [Recovered/Resolved]
  - Off label use [Unknown]
